FAERS Safety Report 6691406-9 (Version None)
Quarter: 2010Q2

REPORT INFORMATION
  Report Type: 
  Country: None (occurrence: None)
  Receive Date: 20100416
  Receipt Date: 20100406
  Transmission Date: 20101027
  Serious: Yes (Hospitalization)
  Sender: FDA-Public Use
  Company Number: 009460

PATIENT
  Sex: Female
  Weight: 66 kg

DRUGS (6)
  1. CERTOLIZUMAB PEGOL (CERTOLIZUMAB PEGOL) [Suspect]
     Indication: RHEUMATOID ARTHRITIS
     Dosage: SEE IMAGE, SUBCUTANEOUS
     Route: 058
     Dates: start: 20050829, end: 20060815
  2. CERTOLIZUMAB PEGOL (CERTOLIZUMAB PEGOL) [Suspect]
     Indication: RHEUMATOID ARTHRITIS
     Dosage: SEE IMAGE, SUBCUTANEOUS
     Route: 058
     Dates: start: 20060831, end: 20080115
  3. CERTOLIZUMAB PEGOL (CERTOLIZUMAB PEGOL) [Suspect]
     Indication: RHEUMATOID ARTHRITIS
     Dosage: SEE IMAGE, SUBCUTANEOUS
     Route: 058
     Dates: start: 20080212
  4. METHOTREXATE [Concomitant]
  5. DIPYRONE INJ [Concomitant]
  6. REGULON [Concomitant]

REACTIONS (10)
  - ARTHRITIS GONOCOCCAL [None]
  - CHONDROMALACIA [None]
  - FALL [None]
  - HEADACHE [None]
  - JOINT SPRAIN [None]
  - LIGAMENT DISORDER [None]
  - MENISCUS LESION [None]
  - PAIN [None]
  - SYNOVIAL CYST [None]
  - SYNOVITIS [None]
